FAERS Safety Report 8533294-1 (Version None)
Quarter: 2012Q3

REPORT INFORMATION
  Report Type: 
  Country: None (occurrence: None)
  Receive Date: 20120717
  Receipt Date: 20120717
  Transmission Date: 20120928
  Serious: Yes (Other)
  Sender: FDA-Public Use
  Company Number: None

PATIENT
  Sex: Male

DRUGS (2)
  1. TRAMADOL HCL [Suspect]
     Indication: BONE DISORDER
     Dosage: 180 MG THREE A DAY PO
     Route: 048
     Dates: start: 20120704, end: 20120716
  2. TRAMADOL HCL [Suspect]
     Indication: CONGENITAL ANOMALY
     Dosage: 180 MG THREE A DAY PO
     Route: 048
     Dates: start: 20120704, end: 20120716

REACTIONS (7)
  - DRUG WITHDRAWAL SYNDROME [None]
  - TREMOR [None]
  - DISORIENTATION [None]
  - PYREXIA [None]
  - NAUSEA [None]
  - VOMITING [None]
  - DIARRHOEA [None]
